FAERS Safety Report 4795084-5 (Version None)
Quarter: 2005Q4

REPORT INFORMATION
  Report Type: 
  Country: None (occurrence: None)
  Receive Date: 20051006
  Receipt Date: 20050926
  Transmission Date: 20060501
  Serious: Yes (Death, Hospitalization)
  Sender: FDA-Public Use
  Company Number: 2005BI011006

PATIENT
  Age: 59 Year
  Sex: Female

DRUGS (22)
  1. AVONEX [Suspect]
     Indication: MULTIPLE SCLEROSIS
     Dosage: IM
     Route: 030
     Dates: end: 20030101
  2. AVONEX [Suspect]
     Indication: MULTIPLE SCLEROSIS
     Dosage: IM
     Dates: start: 20030101
  3. ALBUTEROL [Concomitant]
  4. FLOVENT [Concomitant]
  5. L-THYROXINE [Concomitant]
  6. OXYCODONE HCL [Concomitant]
  7. AMANTADINE [Concomitant]
  8. PAXIL [Concomitant]
  9. BECONASE [Concomitant]
  10. NORMAL SALINE FOR INHALATION [Concomitant]
  11. ROBITUSSIN [Concomitant]
  12. CELEBREX [Concomitant]
  13. BACLOFEN [Concomitant]
  14. MULTI-VITAMIN [Concomitant]
  15. IPROFEN [Concomitant]
  16. PREMARIN [Concomitant]
  17. NITROFURANTOIN [Concomitant]
  18. DILTIAZEM HCL [Concomitant]
  19. MAGNESIUM SULFATE [Concomitant]
  20. ATROVENT [Concomitant]
  21. BUDESONIDE [Concomitant]
  22. LISINOPRIL [Concomitant]

REACTIONS (17)
  - ANXIETY [None]
  - APHAGIA [None]
  - ASTHMA [None]
  - ATRIAL TACHYCARDIA [None]
  - BLOOD CREATINE PHOSPHOKINASE INCREASED [None]
  - CHRONIC OBSTRUCTIVE PULMONARY DISEASE [None]
  - COMA [None]
  - DEPRESSION [None]
  - DYSKINESIA [None]
  - DYSPNOEA [None]
  - HYPERCAPNIA [None]
  - HYPERTENSION [None]
  - HYPOMAGNESAEMIA [None]
  - HYPOTHYROIDISM [None]
  - MUSCLE TWITCHING [None]
  - PAIN [None]
  - THERAPY NON-RESPONDER [None]
